FAERS Safety Report 9103586 (Version 2)
Quarter: 2013Q1

REPORT INFORMATION
  Report Type: Report from Study
  Country: HU (occurrence: HU)
  Receive Date: 20130218
  Receipt Date: 20130321
  Transmission Date: 20140127
  Serious: Yes (Life-Threatening, Hospitalization)
  Sender: FDA-Public Use
  Company Number: HU-GLAXOSMITHKLINE-B0868134A

PATIENT
  Age: 74 None
  Sex: Male

DRUGS (6)
  1. SERETIDE [Suspect]
     Indication: ASTHMA
     Dosage: 1PUFF TWICE PER DAY
     Route: 055
     Dates: end: 20121228
  2. VENTOLIN [Concomitant]
     Dosage: 2PUFF PER DAY
  3. APROVEL [Concomitant]
     Indication: HYPERTENSION
     Dosage: 300MG PER DAY
  4. METYPRED [Concomitant]
  5. SPIRIVA [Concomitant]
     Dosage: 18MG PER DAY
     Dates: start: 201301
  6. THEOSPIREX [Concomitant]
     Dosage: 300MG PER DAY

REACTIONS (7)
  - Fungal oesophagitis [Unknown]
  - Haemoptysis [Recovered/Resolved]
  - Dyspnoea [Recovered/Resolved]
  - Lung disorder [Recovered/Resolved]
  - Pyrexia [Recovered/Resolved]
  - Hypertension [Recovered/Resolved]
  - Pulmonary oedema [None]
